FAERS Safety Report 6909556-8 (Version None)
Quarter: 2010Q3

REPORT INFORMATION
  Report Type: 
  Country: None (occurrence: None)
  Receive Date: 20100805
  Receipt Date: 20100624
  Transmission Date: 20110219
  Serious: Yes (Hospitalization, Other)
  Sender: FDA-Public Use
  Company Number: US-BAXTER-2010BH003505

PATIENT
  Age: 58 Year
  Sex: Male
  Weight: 79 kg

DRUGS (49)
  1. HEPARIN SODIUM [Suspect]
     Indication: MITRAL VALVE REPAIR
     Route: 042
     Dates: start: 20080409, end: 20080409
  2. HEPARIN SODIUM [Suspect]
     Indication: HAEMODIALYSIS
     Route: 042
     Dates: start: 20080409, end: 20080409
  3. HEPARIN SODIUM [Suspect]
     Indication: PULMONARY EMBOLISM
     Route: 042
     Dates: start: 20080409, end: 20080409
  4. HEPARIN SODIUM [Suspect]
     Route: 058
     Dates: start: 20080410, end: 20080415
  5. HEPARIN SODIUM [Suspect]
     Route: 058
     Dates: start: 20080410, end: 20080415
  6. HEPARIN SODIUM [Suspect]
     Route: 058
     Dates: start: 20080410, end: 20080415
  7. HEPARIN SODIUM [Suspect]
     Route: 042
     Dates: start: 20080522, end: 20080522
  8. HEPARIN SODIUM [Suspect]
     Route: 042
     Dates: start: 20080522, end: 20080522
  9. HEPARIN SODIUM [Suspect]
     Route: 042
     Dates: start: 20080522, end: 20080522
  10. HEPARIN SODIUM [Suspect]
     Route: 010
     Dates: start: 20080516, end: 20080516
  11. HEPARIN SODIUM [Suspect]
     Route: 010
     Dates: start: 20080516, end: 20080516
  12. HEPARIN SODIUM [Suspect]
     Route: 010
     Dates: start: 20080516, end: 20080516
  13. HEPARIN SODIUM [Suspect]
     Route: 010
     Dates: start: 20080522, end: 20080522
  14. HEPARIN SODIUM [Suspect]
     Route: 010
     Dates: start: 20080522, end: 20080522
  15. HEPARIN SODIUM [Suspect]
     Route: 010
     Dates: start: 20080522, end: 20080522
  16. HEPARIN SODIUM [Suspect]
     Route: 040
     Dates: start: 20080518, end: 20080518
  17. HEPARIN SODIUM [Suspect]
     Route: 040
     Dates: start: 20080518, end: 20080518
  18. HEPARIN SODIUM [Suspect]
     Route: 040
     Dates: start: 20080518, end: 20080518
  19. HEPARIN SODIUM [Suspect]
     Route: 042
     Dates: start: 20080519, end: 20080519
  20. HEPARIN SODIUM [Suspect]
     Route: 042
     Dates: start: 20080519, end: 20080519
  21. HEPARIN SODIUM [Suspect]
     Route: 042
     Dates: start: 20080519, end: 20080519
  22. HEPARIN SODIUM [Suspect]
     Route: 042
     Dates: start: 20080522, end: 20080522
  23. HEPARIN SODIUM [Suspect]
     Route: 042
     Dates: start: 20080522, end: 20080522
  24. HEPARIN SODIUM [Suspect]
     Route: 042
     Dates: start: 20080522, end: 20080522
  25. HEPARIN SODIUM 5,000 UNITS IN DEXTROSE 5% [Suspect]
     Indication: PULMONARY EMBOLISM
     Route: 042
     Dates: start: 20080518, end: 20080522
  26. MILRINONE [Suspect]
     Indication: CARDIAC FAILURE CONGESTIVE
     Route: 065
     Dates: start: 20080601, end: 20080101
  27. OMEPRAZOLE [Concomitant]
     Indication: PRODUCT USED FOR UNKNOWN INDICATION
     Route: 065
  28. EFFEXOR XR [Concomitant]
     Indication: PRODUCT USED FOR UNKNOWN INDICATION
     Route: 065
  29. GABAPENTIN [Concomitant]
     Indication: PRODUCT USED FOR UNKNOWN INDICATION
     Route: 065
  30. TYLENOL W/ CODEINE NO. 3 [Concomitant]
     Indication: PRODUCT USED FOR UNKNOWN INDICATION
     Route: 065
  31. ZITHROMAX [Concomitant]
     Indication: PRODUCT USED FOR UNKNOWN INDICATION
     Route: 065
  32. HYDROCODONE [Concomitant]
     Indication: PRODUCT USED FOR UNKNOWN INDICATION
     Route: 065
  33. COMBIVENT                               /GFR/ [Concomitant]
     Indication: PRODUCT USED FOR UNKNOWN INDICATION
     Route: 065
  34. FUROSEMIDE [Concomitant]
     Indication: PRODUCT USED FOR UNKNOWN INDICATION
     Route: 065
  35. HYDROXYCHLOROQUINE [Concomitant]
     Indication: PRODUCT USED FOR UNKNOWN INDICATION
     Route: 065
  36. CARTIA XT [Concomitant]
     Indication: PRODUCT USED FOR UNKNOWN INDICATION
     Route: 065
  37. CIPRO [Concomitant]
     Indication: PNEUMONIA
     Route: 065
  38. VALSARTAN [Concomitant]
     Indication: PRODUCT USED FOR UNKNOWN INDICATION
     Route: 065
  39. FOLIC ACID [Concomitant]
     Indication: PRODUCT USED FOR UNKNOWN INDICATION
     Route: 065
  40. 5% DEXTROSE INJECTION [Concomitant]
     Indication: PRODUCT USED FOR UNKNOWN INDICATION
     Route: 065
  41. AMIODARONE HYDROCHLORIDE [Concomitant]
     Indication: PRODUCT USED FOR UNKNOWN INDICATION
     Route: 065
  42. CEFAZOLIN [Concomitant]
     Indication: PRODUCT USED FOR UNKNOWN INDICATION
     Route: 065
  43. ALBUTEROL [Concomitant]
     Indication: PRODUCT USED FOR UNKNOWN INDICATION
     Route: 065
  44. WARFARIN [Concomitant]
     Indication: PRODUCT USED FOR UNKNOWN INDICATION
     Route: 065
  45. DOCUSATE SODIUM [Concomitant]
     Indication: PRODUCT USED FOR UNKNOWN INDICATION
     Route: 065
  46. FERROUS GLUCONATE [Concomitant]
     Indication: PRODUCT USED FOR UNKNOWN INDICATION
     Route: 065
  47. MAGNESIUM SULFATE [Concomitant]
     Indication: PRODUCT USED FOR UNKNOWN INDICATION
     Route: 065
  48. PERCOCET [Concomitant]
     Indication: PRODUCT USED FOR UNKNOWN INDICATION
     Route: 065
  49. POTASSIUM [Concomitant]
     Indication: PRODUCT USED FOR UNKNOWN INDICATION
     Route: 065

REACTIONS (21)
  - ACUTE RESPIRATORY FAILURE [None]
  - CARDIAC FAILURE CONGESTIVE [None]
  - CARDIAC VALVE REPLACEMENT COMPLICATION [None]
  - COAGULOPATHY [None]
  - DIARRHOEA [None]
  - DRUG HYPERSENSITIVITY [None]
  - EJECTION FRACTION DECREASED [None]
  - FATIGUE [None]
  - HEPARIN-INDUCED THROMBOCYTOPENIA [None]
  - HYPOKINESIA [None]
  - HYPOPROTHROMBINAEMIA [None]
  - HYPOTENSION [None]
  - ISCHAEMIC HEPATITIS [None]
  - METABOLIC ACIDOSIS [None]
  - MULTI-ORGAN FAILURE [None]
  - NAUSEA [None]
  - PNEUMONIA [None]
  - PULMONARY EMBOLISM [None]
  - RENAL FAILURE ACUTE [None]
  - VENTRICULAR TACHYCARDIA [None]
  - VOMITING [None]
